FAERS Safety Report 9613326 (Version 3)
Quarter: 2014Q1

REPORT INFORMATION
  Report Type: Report from Study
  Country: US (occurrence: US)
  Receive Date: 20131010
  Receipt Date: 20140110
  Transmission Date: 20141002
  Serious: Yes (Other)
  Sender: FDA-Public Use
  Company Number: US-ROCHE-1281444

PATIENT
  Sex: Male

DRUGS (9)
  1. LUCENTIS [Suspect]
     Indication: DIABETIC RETINOPATHY
     Dosage: MOST RECENT DOSE DATE OF RANIBIZUMAB: 03/SEP/2013.
     Route: 050
  2. LUCENTIS [Suspect]
     Indication: MACULAR OEDEMA
  3. AVASTIN [Suspect]
     Indication: DIABETIC RETINOPATHY
     Route: 065
  4. AVASTIN [Suspect]
     Indication: MACULAR OEDEMA
  5. METFORMIN [Concomitant]
     Route: 065
  6. RESTASIS [Concomitant]
     Dosage: 12 HOURS, BID
     Route: 065
  7. SYSTANE [Concomitant]
     Dosage: PRN
     Route: 065
  8. BLINK TEARS [Concomitant]
     Dosage: PRN
     Route: 065
  9. BALANCE (NUTRITIONAL SUPPLEMENT) [Concomitant]
     Dosage: PRN
     Route: 065

REACTIONS (5)
  - Macular oedema [Unknown]
  - Dry eye [Unknown]
  - Pain [Unknown]
  - Sensation of pressure [Unknown]
  - Punctate keratitis [Unknown]
